FAERS Safety Report 14656577 (Version 1)
Quarter: 2018Q1

REPORT INFORMATION
  Report Type: Spontaneous
  Country: CA (occurrence: CA)
  Receive Date: 20180319
  Receipt Date: 20180319
  Transmission Date: 20180509
  Serious: Yes (Hospitalization, Other)
  Sender: FDA-Public Use
  Company Number: CA-PFIZER INC-2017522216

PATIENT
  Age: 87 Year
  Sex: Female

DRUGS (1)
  1. XELJANZ [Suspect]
     Active Substance: TOFACITINIB CITRATE
     Indication: RHEUMATOID ARTHRITIS
     Dosage: 5 MG, 2X/DAY
     Route: 048
     Dates: start: 20170901, end: 20171213

REACTIONS (7)
  - Polyp [Unknown]
  - Drug ineffective [Unknown]
  - Pain [Unknown]
  - Tooth infection [Unknown]
  - Internal haemorrhage [Unknown]
  - Ophthalmic herpes zoster [Unknown]
  - Anaemia [Unknown]
